FAERS Safety Report 22596354 (Version 9)
Quarter: 2023Q4

REPORT INFORMATION
  Report Type: Spontaneous
  Country: US (occurrence: US)
  Receive Date: 20230613
  Receipt Date: 20231218
  Transmission Date: 20240110
  Serious: No
  Sender: FDA-Public Use
  Company Number: US-PFIZER INC-PV202300101973

PATIENT
  Age: 73 Year
  Sex: Female
  Weight: 65 kg

DRUGS (7)
  1. INLYTA [Suspect]
     Active Substance: AXITINIB
     Indication: Adenocarcinoma of salivary gland
     Dosage: 5 MG, 2X/DAY (1 TABLET EVERY 12 HOURS)
     Route: 048
  2. INLYTA [Suspect]
     Active Substance: AXITINIB
     Dosage: 10 MG, 2X/DAY (2 TABLETS EVERY 12 HOURS)
     Route: 048
  3. INLYTA [Suspect]
     Active Substance: AXITINIB
     Dosage: 7 MG, 2X/DAY
     Route: 048
  4. INLYTA [Suspect]
     Active Substance: AXITINIB
     Dosage: 5 MG, 1X/DAY, TAKE 1 TABLET BY MOUTH ONCE DAILY
     Route: 048
  5. INLYTA [Suspect]
     Active Substance: AXITINIB
     Dosage: 7 MG, 2X/DAY, (2 (TWO) 1MG TABLETS WITH 1 (ONE) 5MG TABLET TO EQUAL 7 (SEVEN) MG) PO EVERY 12 HOURS
     Route: 048
  6. INLYTA [Suspect]
     Active Substance: AXITINIB
     Dosage: 6 MG, 1X/DAY, (TAKE 1 TAB WITH 1 OTHER PILL (1 TAB OF 5 MG) TO MAKE 6 MG IN AM)
  7. INLYTA [Suspect]
     Active Substance: AXITINIB
     Dosage: 11 MG (TAKE 1 TAB (5 MG) WITH 1 OTHER TAB (1 MG) TO MAKE 6 MG IN AM AND THEN 1 TAB (5 MG) IN PM)

REACTIONS (2)
  - Off label use [Unknown]
  - Weight decreased [Unknown]
